FAERS Safety Report 25887723 (Version 1)
Quarter: 2025Q4

REPORT INFORMATION
  Report Type: Spontaneous
  Country: US (occurrence: US)
  Receive Date: 20251007
  Receipt Date: 20251007
  Transmission Date: 20260117
  Serious: No
  Sender: ROCHE
  Company Number: US-ROCHE-10000402773

PATIENT
  Age: 65 Year
  Sex: Female
  Weight: 66.68 kg

DRUGS (1)
  1. ACTEMRA [Suspect]
     Active Substance: TOCILIZUMAB
     Indication: Giant cell arteritis
     Dosage: HER 2ND INJECTION WAS ON 14-SEP-2025, 3RD INJECTION ON 21-SEP-2025, 4TH INJECTION ON 28-SEP-2025.
     Route: 058
     Dates: start: 20250907

REACTIONS (1)
  - Injection site reaction [Unknown]

NARRATIVE: CASE EVENT DATE: 20250917
